FAERS Safety Report 6556700-0 (Version None)
Quarter: 2010Q1

REPORT INFORMATION
  Report Type: 
  Country: None (occurrence: None)
  Receive Date: 20100125
  Receipt Date: 20100114
  Transmission Date: 20100710
  Serious: Yes (Hospitalization)
  Sender: FDA-Public Use
  Company Number: 2008-174108-NL

PATIENT
  Age: 44 Year
  Sex: Female
  Weight: 81.6 kg

DRUGS (3)
  1. NUVARING [Suspect]
     Indication: CONTRACEPTION
     Dates: start: 20040804, end: 20041214
  2. LEVOTHYROXINE SODIUM [Concomitant]
  3. FUROSEMIDE [Concomitant]

REACTIONS (16)
  - CEREBRAL HAEMORRHAGE [None]
  - CEREBRAL INFARCTION [None]
  - CONVULSION [None]
  - DYSKINESIA [None]
  - FEELING HOT [None]
  - HEADACHE [None]
  - HYPERCOAGULATION [None]
  - HYPOAESTHESIA FACIAL [None]
  - LIMB DISCOMFORT [None]
  - LIVEDO RETICULARIS [None]
  - PAIN IN EXTREMITY [None]
  - PARAESTHESIA [None]
  - PARALYSIS [None]
  - PLANTAR FASCIITIS [None]
  - SUPERIOR SAGITTAL SINUS THROMBOSIS [None]
  - SWELLING [None]
